FAERS Safety Report 24771994 (Version 2)
Quarter: 2024Q4

REPORT INFORMATION
  Report Type: Spontaneous
  Country: US (occurrence: US)
  Receive Date: 20241224
  Receipt Date: 20241230
  Transmission Date: 20250115
  Serious: Yes (Hospitalization)
  Sender: PFIZER
  Company Number: US-PFIZER INC-202400106579

PATIENT
  Age: 1 Year
  Sex: Male

DRUGS (3)
  1. BENEFIX [Suspect]
     Active Substance: COAGULATION FACTOR IX RECOMBINANT HUMAN\ISOPROPYL ALCOHOL
     Dosage: 450-540 UNITS IVP EVERY 24 HOURS AS NEEDED FOR MINOR BLEED. 900-1080 UNITS IVP AS NEEDED FOR MAJOR
  2. BENEFIX [Suspect]
     Active Substance: COAGULATION FACTOR IX RECOMBINANT HUMAN\ISOPROPYL ALCOHOL
     Dosage: 50-60 UNITS/KG (450-540 UNITS) IV PUSH. 900-1080 UNITS IV PUSH AT THE TIME OF BLEED
  3. BENEFIX [Suspect]
     Active Substance: COAGULATION FACTOR IX RECOMBINANT HUMAN\ISOPROPYL ALCOHOL
     Dosage: UNK

REACTIONS (1)
  - Gastrointestinal haemorrhage [Unknown]
